FAERS Safety Report 7855235-2 (Version None)
Quarter: 2011Q4

REPORT INFORMATION
  Report Type: 
  Country: None (occurrence: None)
  Receive Date: 20111026
  Receipt Date: 20111025
  Transmission Date: 20120403
  Serious: Yes (Other)
  Sender: FDA-Public Use
  Company Number: US-PFIZER INC-2011260207

PATIENT
  Sex: Female
  Weight: 49.887 kg

DRUGS (3)
  1. MARCAINE [Concomitant]
     Indication: ANAESTHESIA
     Dosage: UNK
  2. DEPO-MEDROL [Suspect]
     Indication: BACK PAIN
     Dosage: 80 MG, UNK
     Dates: start: 20110929
  3. PROPRANOLOL [Concomitant]
     Indication: ANAESTHESIA
     Dosage: UNK

REACTIONS (1)
  - MYOCLONUS [None]
